FAERS Safety Report 5403947-2 (Version None)
Quarter: 2007Q3

REPORT INFORMATION
  Report Type: 
  Country: None (occurrence: None)
  Receive Date: 20070802
  Receipt Date: 20070726
  Transmission Date: 20080115
  Serious: Yes (Other)
  Sender: FDA-Public Use
  Company Number: US-GENENTECH-232580

PATIENT
  Sex: Female
  Weight: 67 kg

DRUGS (1)
  1. RAPTIVA [Suspect]
     Indication: DRUG USE FOR UNKNOWN INDICATION
     Dosage: 70 MG, 1/WEEK
     Route: 058
     Dates: start: 20040401

REACTIONS (2)
  - OVARIAN CANCER [None]
  - PAPILLOMA VIRAL INFECTION [None]
